FAERS Safety Report 5731060-3 (Version None)
Quarter: 2008Q2

REPORT INFORMATION
  Report Type: 
  Country: None (occurrence: None)
  Receive Date: 20080507
  Receipt Date: 20080428
  Transmission Date: 20081010
  Serious: Yes (Hospitalization)
  Sender: FDA-Public Use
  Company Number: US-MERCK-0803USA04587

PATIENT
  Age: 30 Year
  Sex: Female
  Weight: 129 kg

DRUGS (16)
  1. JANUVIA [Suspect]
     Indication: TYPE 2 DIABETES MELLITUS
     Route: 048
     Dates: start: 20080128, end: 20080301
  2. JANUVIA [Suspect]
     Route: 048
     Dates: start: 20080301
  3. NALTREXONE [Concomitant]
     Indication: FATIGUE
     Route: 048
  4. XIFAXAN [Concomitant]
     Indication: CROHN'S DISEASE
     Route: 048
  5. ASACOL [Concomitant]
     Indication: CROHN'S DISEASE
     Route: 048
  6. NORTREL 7/7/7 [Concomitant]
     Indication: ORAL CONTRACEPTION
     Route: 048
  7. MERCAPTOPURINE [Suspect]
     Indication: CROHN'S DISEASE
     Route: 048
     Dates: start: 20060501, end: 20080301
  8. JANUMET [Suspect]
     Indication: TYPE 2 DIABETES MELLITUS
     Route: 048
     Dates: start: 20080101, end: 20080101
  9. METFORMIN [Concomitant]
     Indication: TYPE 2 DIABETES MELLITUS
     Route: 048
     Dates: start: 20080128, end: 20080301
  10. METFORMIN [Concomitant]
     Route: 048
     Dates: start: 20080301
  11. NSI BOSWELLIA EXTRACT [Concomitant]
     Route: 065
  12. MAGNESIUM (UNSPECIFIED) [Concomitant]
     Route: 065
  13. FLAXSEED [Concomitant]
     Route: 065
  14. ASCORBIC ACID [Concomitant]
     Route: 065
  15. CYANOCOBALAMIN [Concomitant]
     Route: 065
  16. DEXAMETHASONE [Concomitant]
     Indication: DEXAMETHASONE SUPPRESSION TEST
     Route: 065

REACTIONS (3)
  - ABDOMINAL ADHESIONS [None]
  - ACCIDENTAL OVERDOSE [None]
  - HEPATITIS [None]
